FAERS Safety Report 25712430 (Version 1)
Quarter: 2025Q3

REPORT INFORMATION
  Report Type: Report from Study
  Country: CN (occurrence: CN)
  Receive Date: 20250821
  Receipt Date: 20250821
  Transmission Date: 20251020
  Serious: Yes (Hospitalization)
  Sender: ELI LILLY AND COMPANY
  Company Number: CN-ELI_LILLY_AND_COMPANY-CN202503014712

PATIENT
  Age: 38 Year
  Sex: Male
  Weight: 75 kg

DRUGS (8)
  1. TALTZ [Suspect]
     Active Substance: IXEKIZUMAB
     Indication: Psoriasis
     Route: 058
     Dates: start: 20240414, end: 20240414
  2. TALTZ [Suspect]
     Active Substance: IXEKIZUMAB
     Indication: Psoriasis
     Route: 058
     Dates: start: 20240414, end: 20240414
  3. TALTZ [Suspect]
     Active Substance: IXEKIZUMAB
     Route: 058
     Dates: start: 20240428, end: 20240714
  4. TALTZ [Suspect]
     Active Substance: IXEKIZUMAB
     Route: 058
     Dates: start: 20240428, end: 20240714
  5. TALTZ [Suspect]
     Active Substance: IXEKIZUMAB
     Route: 058
     Dates: start: 20240814
  6. TALTZ [Suspect]
     Active Substance: IXEKIZUMAB
     Route: 058
     Dates: start: 20240814
  7. TALTZ [Suspect]
     Active Substance: IXEKIZUMAB
     Route: 058
  8. TALTZ [Suspect]
     Active Substance: IXEKIZUMAB
     Route: 058

REACTIONS (6)
  - Eczema [Recovering/Resolving]
  - Hypertension [Recovered/Resolved]
  - Vitamin B1 deficiency [Recovering/Resolving]
  - Inappropriate schedule of product administration [Unknown]
  - Psoriasis [Recovering/Resolving]
  - Tinea pedis [Recovering/Resolving]
